FAERS Safety Report 13429257 (Version 1)
Quarter: 2017Q2

REPORT INFORMATION
  Report Type: Report from Study
  Country: US (occurrence: US)
  Receive Date: 20170411
  Receipt Date: 20170411
  Transmission Date: 20170830
  Serious: Yes (Other)
  Sender: FDA-Public Use
  Company Number: US-ALEXION PHARMACEUTICALS INC.-A201703475

PATIENT
  Sex: Female

DRUGS (1)
  1. SOLIRIS [Suspect]
     Active Substance: ECULIZUMAB
     Indication: HAEMOLYTIC URAEMIC SYNDROME
     Dosage: 1200 MG, Q2W
     Route: 042
     Dates: start: 20161207, end: 20170328

REACTIONS (9)
  - Haemoglobin abnormal [Unknown]
  - Blood pressure increased [Not Recovered/Not Resolved]
  - Blood creatinine abnormal [Unknown]
  - Blood urea abnormal [Unknown]
  - Haematocrit abnormal [Unknown]
  - Hyperhidrosis [Unknown]
  - Blood calcium abnormal [Unknown]
  - Muscle spasms [Unknown]
  - Pain in extremity [Not Recovered/Not Resolved]

NARRATIVE: CASE EVENT DATE: 20170207
